FAERS Safety Report 17169255 (Version 2)
Quarter: 2019Q4

REPORT INFORMATION
  Report Type: Report from Study
  Country: CR (occurrence: CR)
  Receive Date: 20191218
  Receipt Date: 20191226
  Transmission Date: 20200122
  Serious: Yes (Death, Other)
  Sender: FDA-Public Use
  Company Number: NVSC2019CR072600

PATIENT
  Sex: Female
  Weight: 110 kg

DRUGS (1)
  1. EXFORGE [Suspect]
     Active Substance: AMLODIPINE BESYLATE\VALSARTAN
     Indication: HYPERTENSION
     Dosage: 1 DF (10/160 MG), QD (END DATE:1 YEAR AND 6 MONTHS AGO)
     Route: 065
     Dates: start: 2014

REACTIONS (4)
  - Hepatic steatosis [Unknown]
  - Diabetes mellitus [Unknown]
  - Liver disorder [Fatal]
  - Thrombosis [Unknown]

NARRATIVE: CASE EVENT DATE: 2015
